FAERS Safety Report 4362096-5 (Version None)
Quarter: 2004Q2

REPORT INFORMATION
  Report Type: 
  Country: None (occurrence: None)
  Receive Date: 20040518
  Receipt Date: 20040505
  Transmission Date: 20050107
  Serious: Yes (Hospitalization, Other)
  Sender: FDA-Public Use
  Company Number: 163-20785-04040156

PATIENT
  Age: 70 Year
  Sex: Male

DRUGS (1)
  1. THALOMID [Suspect]
     Indication: MULTIPLE MYELOMA
     Dosage: 200 MG, DAILY, ORAL
     Route: 048
     Dates: start: 20040217

REACTIONS (4)
  - DEEP VEIN THROMBOSIS [None]
  - NEPHROTIC SYNDROME [None]
  - PAIN IN EXTREMITY [None]
  - RENAL AMYLOIDOSIS [None]
